FAERS Safety Report 4446779-4 (Version None)
Quarter: 2004Q3

REPORT INFORMATION
  Report Type: 
  Country: None (occurrence: None)
  Receive Date: 20040910
  Receipt Date: 20040820
  Transmission Date: 20050211
  Serious: Yes (Other)
  Sender: FDA-Public Use
  Company Number: 8007104

PATIENT
  Age: 50 Year
  Sex: Female

DRUGS (10)
  1. KEPPRA [Suspect]
     Indication: CONVULSION
     Dosage: PO
     Route: 048
     Dates: start: 20030606, end: 20040801
  2. KEPPRA [Suspect]
     Indication: CONVULSION
     Dosage: 50 PO
     Route: 048
     Dates: start: 20040801, end: 20040801
  3. COUMADIN [Suspect]
     Indication: CEREBROVASCULAR ACCIDENT
     Dosage: PO
     Route: 048
  4. COUMADIN [Suspect]
     Indication: CEREBROVASCULAR ACCIDENT
     Dosage: PO
     Route: 048
     Dates: start: 20040801, end: 20040801
  5. PRELONE [Suspect]
     Dosage: PO
     Route: 048
  6. PRELONE [Suspect]
     Dosage: PO
     Route: 048
     Dates: start: 20040801, end: 20040801
  7. LISINOPRIL [Suspect]
     Dosage: PO
     Route: 048
  8. LISINOPRIL [Suspect]
     Dosage: 3 PO
     Route: 048
     Dates: start: 20040801, end: 20040801
  9. PROTONIX [Suspect]
     Dosage: PO
     Route: 048
  10. PROTONIX [Suspect]
     Dosage: PO
     Route: 048
     Dates: start: 20040801, end: 20040801

REACTIONS (5)
  - DEPRESSION [None]
  - INTERNATIONAL NORMALISED RATIO INCREASED [None]
  - LOSS OF CONSCIOUSNESS [None]
  - MULTIPLE DRUG OVERDOSE [None]
  - PANCREATITIS [None]
